FAERS Safety Report 9868542 (Version 2)
Quarter: 2014Q1

REPORT INFORMATION
  Report Type: Spontaneous
  Country: ZA (occurrence: ZA)
  Receive Date: 20140204
  Receipt Date: 20140204
  Transmission Date: 20141002
  Serious: Yes (Hospitalization, Other)
  Sender: FDA-Public Use
  Company Number: ZA-PFIZER INC-2014031182

PATIENT
  Age: 48 Year
  Sex: Male

DRUGS (3)
  1. HYDROCORTISONE SODIUM SUCCINATE [Suspect]
     Indication: BRONCHOSPASM
     Dosage: 400 MG, UNK
     Route: 040
  2. HEXOPRENALINE [Concomitant]
     Indication: BRONCHOSPASM
     Route: 055
  3. THEOPHYLLINE [Concomitant]
     Indication: BRONCHOSPASM
     Dosage: UNK
     Route: 042

REACTIONS (2)
  - Respiratory arrest [Unknown]
  - Bronchospasm [Unknown]
